FAERS Safety Report 4849055-0 (Version None)
Quarter: 2005Q4

REPORT INFORMATION
  Report Type: 
  Country: None (occurrence: None)
  Receive Date: 20051209
  Receipt Date: 20050506
  Transmission Date: 20060501
  Serious: Yes (Other)
  Sender: FDA-Public Use
  Company Number: FR-BOEHRINGER INGELHEIM PHARMACEUTICALS, INC.-2005-FF-00322FF

PATIENT
  Sex: Male

DRUGS (1)
  1. JOSIR [Suspect]
     Route: 048
     Dates: start: 20050314, end: 20050501

REACTIONS (2)
  - HIV TEST POSITIVE [None]
  - KAPOSI'S SARCOMA [None]
